FAERS Safety Report 8450008-4 (Version None)
Quarter: 2012Q2

REPORT INFORMATION
  Report Type: 
  Country: None (occurrence: None)
  Receive Date: 20120620
  Receipt Date: 20120618
  Transmission Date: 20120825
  Serious: Yes (Other)
  Sender: FDA-Public Use
  Company Number: PHHY2012NL052354

PATIENT
  Sex: Male

DRUGS (3)
  1. ZOMETA [Suspect]
     Dosage: 4 MG/100ML 1X PER 28 DAYS
     Dates: start: 20120521
  2. ZOMETA [Suspect]
     Indication: PROSTATE CANCER METASTATIC
     Dosage: 4 MG/100ML 1X PER 28 DAYS
     Dates: start: 20120105
  3. ZOMETA [Suspect]
     Dosage: 4 MG/100ML 1X PER 28 DAYS
     Dates: start: 20120420

REACTIONS (1)
  - TERMINAL STATE [None]
